FAERS Safety Report 8009555-1 (Version None)
Quarter: 2011Q4

REPORT INFORMATION
  Report Type: 
  Country: None (occurrence: None)
  Receive Date: 20111227
  Receipt Date: 20111221
  Transmission Date: 20120403
  Serious: Yes (Hospitalization, Other)
  Sender: FDA-Public Use
  Company Number: DE-AMGEN-DEUSP2011045491

PATIENT
  Age: 6 Year
  Sex: Male

DRUGS (2)
  1. ENBREL [Suspect]
     Indication: JUVENILE ARTHRITIS
     Dosage: 0.4MG/KG BODY WEIGHT TWICE PER WEEK
     Dates: start: 20100621, end: 20110921
  2. METHOTREXATE [Concomitant]
     Dosage: UNK

REACTIONS (3)
  - RESTLESSNESS [None]
  - MUSCLE TWITCHING [None]
  - JUVENILE ARTHRITIS [None]
